FAERS Safety Report 7210955-8 (Version None)
Quarter: 2011Q1

REPORT INFORMATION
  Report Type: 
  Country: None (occurrence: None)
  Receive Date: 20110105
  Receipt Date: 20110104
  Transmission Date: 20110831
  Serious: Yes (Other)
  Sender: FDA-Public Use
  Company Number: A0901801A

PATIENT
  Age: 59 Year
  Sex: Female

DRUGS (2)
  1. CORTICOSTEROIDS [Concomitant]
     Indication: IDIOPATHIC THROMBOCYTOPENIC PURPURA
  2. PROMACTA [Suspect]
     Indication: THROMBOCYTOPENIA
     Route: 048
     Dates: start: 20100519

REACTIONS (4)
  - BLOOD BILIRUBIN INCREASED [None]
  - ASPARTATE AMINOTRANSFERASE INCREASED [None]
  - LIVER FUNCTION TEST ABNORMAL [None]
  - HEPATOBILIARY DISEASE [None]
